FAERS Safety Report 14058919 (Version 1)
Quarter: 2017Q4

REPORT INFORMATION
  Report Type: Report from Study
  Country: US (occurrence: US)
  Receive Date: 20171006
  Receipt Date: 20171006
  Transmission Date: 20180321
  Serious: No
  Sender: FDA-Public Use
  Company Number: US-AMGEN-USASL2017025740

PATIENT
  Age: 81 Year
  Sex: Female
  Weight: 60.32 kg

DRUGS (3)
  1. PROLIA [Suspect]
     Active Substance: DENOSUMAB
     Indication: OSTEOPOROSIS
     Dosage: 60 MG, Q6MO
     Route: 058
  2. QUETIAPINE. [Suspect]
     Active Substance: QUETIAPINE
     Indication: INSOMNIA
     Dosage: 200 MG, QD
     Route: 065
  3. PROLIA [Suspect]
     Active Substance: DENOSUMAB
     Indication: DEMENTIA ALZHEIMER^S TYPE

REACTIONS (5)
  - Off label use [Unknown]
  - Hypertension [Unknown]
  - Sleep disorder [Unknown]
  - Head discomfort [Unknown]
  - Vitamin B12 deficiency [Unknown]
